FAERS Safety Report 17076860 (Version 1)
Quarter: 2019Q4

REPORT INFORMATION
  Report Type: Spontaneous
  Country: US (occurrence: US)
  Receive Date: 20191126
  Receipt Date: 20191126
  Transmission Date: 20200122
  Serious: Yes (Other)
  Sender: FDA-Public Use
  Company Number: US-SA-2019SA320459

PATIENT

DRUGS (1)
  1. LANTUS SOLOSTAR [Suspect]
     Active Substance: INSULIN GLARGINE
     Dosage: 22 U, BID
     Route: 058
     Dates: start: 20191112

REACTIONS (3)
  - Inappropriate schedule of product administration [Unknown]
  - Hyperglycaemia [Unknown]
  - Diabetes mellitus inadequate control [Unknown]
